FAERS Safety Report 9218092 (Version 1)
Quarter: 2013Q2

REPORT INFORMATION
  Report Type: Spontaneous
  Country: BE (occurrence: BE)
  Receive Date: 20130408
  Receipt Date: 20130408
  Transmission Date: 20140414
  Serious: Yes (Death)
  Sender: FDA-Public Use
  Company Number: BE-GLAXOSMITHKLINE-B0879748A

PATIENT
  Age: 83 Year
  Sex: Male
  Weight: 93 kg

DRUGS (9)
  1. AUGMENTIN [Suspect]
     Indication: LUNG DISORDER
     Dosage: 1G TWICE PER DAY
     Route: 042
     Dates: start: 20130202, end: 20130206
  2. LAMICTAL [Suspect]
     Indication: EPILEPSY
     Dosage: 75MG PER DAY
     Route: 048
  3. ZYLORIC [Suspect]
     Indication: GOUT
     Dosage: 100MG PER DAY
     Route: 048
  4. ASAFLOW [Concomitant]
     Indication: PROPHYLAXIS
     Dosage: 80MG PER DAY
     Route: 048
  5. MOVICOL [Concomitant]
     Indication: CONSTIPATION
     Dates: end: 20130224
  6. PROLOPA [Concomitant]
     Indication: PARKINSONISM
     Dosage: 250MG THREE TIMES PER DAY
     Route: 048
  7. COSOPT [Concomitant]
     Indication: GLAUCOMA
     Dosage: 1DROP TWICE PER DAY
     Route: 047
  8. FOLIC ACID [Concomitant]
     Indication: FOLATE DEFICIENCY
     Dosage: 4MG PER DAY
     Route: 048
     Dates: start: 20130202, end: 20130207
  9. CEDOCARD [Concomitant]
     Indication: ANAL FISSURE
     Route: 054
     Dates: start: 20130206, end: 20130220

REACTIONS (2)
  - Rash macular [Fatal]
  - Petechiae [Fatal]
